FAERS Safety Report 7211296-5 (Version None)
Quarter: 2011Q1

REPORT INFORMATION
  Report Type: 
  Country: None (occurrence: None)
  Receive Date: 20110105
  Receipt Date: 20101227
  Transmission Date: 20110831
  Serious: Yes (Hospitalization)
  Sender: FDA-Public Use
  Company Number: US-ABBOTT-10P-163-0694176-00

PATIENT
  Sex: Female
  Weight: 71.732 kg

DRUGS (11)
  1. HUMIRA [Suspect]
     Indication: RHEUMATOID ARTHRITIS
     Dates: start: 20080101
  2. METHOTREXATE [Concomitant]
     Indication: RHEUMATOID ARTHRITIS
  3. SIMVASTATIN [Concomitant]
     Indication: BLOOD CHOLESTEROL INCREASED
  4. MICARDIS [Concomitant]
     Indication: HYPERTENSION
  5. GLIPIZIDE [Concomitant]
     Indication: DIABETES MELLITUS
  6. OMEPRAZOLE [Concomitant]
     Indication: FLATULENCE
  7. FOLIC ACID [Concomitant]
     Indication: VITAMIN SUPPLEMENTATION
  8. WARFARIN [Concomitant]
     Indication: ATRIAL FIBRILLATION
  9. ACTONEL [Concomitant]
     Indication: OSTEOPOROSIS
  10. METFORMIN HCL [Concomitant]
     Indication: DIABETES MELLITUS
  11. ASPIRIN [Concomitant]
     Indication: THROMBOSIS
     Dates: start: 20100101

REACTIONS (11)
  - ACCIDENT [None]
  - POSTOPERATIVE THROMBOSIS [None]
  - HYPOTENSION [None]
  - FEMUR FRACTURE [None]
  - MUSCLE SPASMS [None]
  - PYREXIA [None]
  - HAEMATOMA [None]
  - BACK PAIN [None]
  - URINARY TRACT INFECTION [None]
  - SCIATICA [None]
  - LIMB ASYMMETRY [None]
